FAERS Safety Report 25532274 (Version 3)
Quarter: 2025Q3

REPORT INFORMATION
  Report Type: Spontaneous
  Country: LB (occurrence: LB)
  Receive Date: 20250709
  Receipt Date: 20250919
  Transmission Date: 20251021
  Serious: Yes (Hospitalization)
  Sender: NOVO NORDISK
  Company Number: LB-NOVOPROD-1469997

PATIENT
  Age: 48 Year
  Sex: Male
  Weight: 89 kg

DRUGS (11)
  1. OZEMPIC [Suspect]
     Active Substance: SEMAGLUTIDE
     Indication: Type 2 diabetes mellitus
  2. TRESIBA [Suspect]
     Active Substance: INSULIN DEGLUDEC
     Indication: Type 2 diabetes mellitus
  3. JARDIANCE [Concomitant]
     Active Substance: EMPAGLIFLOZIN
  4. AMLODIPINE BESYLATE [Concomitant]
     Active Substance: AMLODIPINE BESYLATE
  5. BISOPROLOL FUMARATE [Concomitant]
     Active Substance: BISOPROLOL FUMARATE
  6. FEBUXOSTAT [Concomitant]
     Active Substance: FEBUXOSTAT
  7. FENOFIBRATE [Concomitant]
     Active Substance: FENOFIBRATE
  8. ATORVASTATIN [Concomitant]
     Active Substance: ATORVASTATIN
  9. ZEMIL [Concomitant]
  10. SINTROM [Concomitant]
     Active Substance: ACENOCOUMAROL
  11. APIDRA [Concomitant]
     Active Substance: INSULIN GLULISINE
     Dosage: 10 IU, QD(4 UNITS (MORNING), 6 UNITS (NOON))

REACTIONS (1)
  - Transient ischaemic attack [Recovered/Resolved]
